FAERS Safety Report 9089049 (Version 1)
Quarter: 2013Q1

REPORT INFORMATION
  Report Type: Report from Study
  Country: US (occurrence: US)
  Receive Date: 20130201
  Receipt Date: 20130201
  Transmission Date: 20140127
  Serious: No
  Sender: FDA-Public Use
  Company Number: US-ABBOTT-12P-163-1023753-00

PATIENT
  Age: 57 Year
  Sex: Male

DRUGS (1)
  1. HUMIRA [Suspect]
     Indication: CROHN^S DISEASE
     Route: 058
     Dates: start: 20120720

REACTIONS (5)
  - Oedema peripheral [Unknown]
  - Rash [Unknown]
  - Injection site pain [Unknown]
  - Fungal infection [Unknown]
  - Diarrhoea [Not Recovered/Not Resolved]
